FAERS Safety Report 24731619 (Version 1)
Quarter: 2024Q4

REPORT INFORMATION
  Report Type: Spontaneous
  Country: GB (occurrence: GB)
  Receive Date: 20241213
  Receipt Date: 20241213
  Transmission Date: 20250114
  Serious: Yes (Other)
  Sender: MYLAN
  Company Number: GB-MHRA-TPP1260218C1651525YC1733652996893

PATIENT
  Age: 74 Year
  Sex: Male
  Weight: 80 kg

DRUGS (17)
  1. FINASTERIDE [Suspect]
     Active Substance: FINASTERIDE
     Indication: Ill-defined disorder
     Dosage: 5 MILLIGRAM, QD (ONCE DAILY)
     Route: 065
     Dates: start: 20241111, end: 20241125
  2. DULOXETINE [Concomitant]
     Active Substance: DULOXETINE
     Indication: Ill-defined disorder
     Dosage: 1 DOSAGE FORM, QD (TAKE ONE DAILY)
     Route: 065
     Dates: start: 20240111
  3. CHOLECALCIFEROL [Concomitant]
     Active Substance: CHOLECALCIFEROL
     Indication: Ill-defined disorder
     Dosage: 1 DOSAGE FORM, QD (TAKE ONE DAILY)
     Route: 065
     Dates: start: 20240111
  4. HYLO TEAR [Concomitant]
     Indication: Ill-defined disorder
     Dosage: UNK (USE AS DIRECTED)
     Route: 065
     Dates: start: 20240111
  5. LAMOTRIGINE [Concomitant]
     Active Substance: LAMOTRIGINE
     Indication: Ill-defined disorder
     Dosage: 1 DOSAGE FORM, QD (TAKE ONE TABLET TWICE DAILY)
     Route: 065
     Dates: start: 20240111
  6. LEVOTHYROXINE [Concomitant]
     Active Substance: LEVOTHYROXINE
     Indication: Ill-defined disorder
     Dosage: 1 DOSAGE FORM, AM (TAKE ONE EACH MORNING)
     Route: 065
     Dates: start: 20240111
  7. LITHIUM [Concomitant]
     Active Substance: LITHIUM
     Indication: Ill-defined disorder
     Dosage: 1 DOSAGE FORM, QD (TAKE ONE DAILY)
     Route: 065
     Dates: start: 20240111, end: 20241202
  8. LOSARTAN [Concomitant]
     Active Substance: LOSARTAN
     Indication: Blood pressure abnormal
     Dosage: 1 DOSAGE FORM, QD (TAKE ONE DAILY)
     Route: 065
     Dates: start: 20240111, end: 20241129
  9. OLANZAPINE [Concomitant]
     Active Substance: OLANZAPINE
     Indication: Ill-defined disorder
     Dosage: 1 DOSAGE FORM, PM (TAKE ONE AT NIGHT)
     Route: 065
     Dates: start: 20240111
  10. ACETAMINOPHEN [Concomitant]
     Active Substance: ACETAMINOPHEN
     Indication: Ill-defined disorder
     Dosage: UNK (TAKE ONE OR TWO TABLETS UP TO FOUR TIMES A DAY)
     Route: 065
     Dates: start: 20240111
  11. PREGABALIN [Concomitant]
     Active Substance: PREGABALIN
     Indication: Ill-defined disorder
     Dosage: 1 DOSAGE FORM, BID (TAKE ONE OR TWO TABLETS UP TO FOUR TIMES A DAY)
     Route: 065
     Dates: start: 20240111
  12. PROPRANOLOL [Concomitant]
     Active Substance: PROPRANOLOL HYDROCHLORIDE
     Indication: Ill-defined disorder
     Dosage: 2 DOSAGE FORM, BID (TAKE TWO TO BE TAKEN TWICE DAILY FOR ANXIETY)
     Route: 065
     Dates: start: 20240111, end: 20241129
  13. PROPRANOLOL [Concomitant]
     Active Substance: PROPRANOLOL HYDROCHLORIDE
     Indication: Anxiety
  14. FERROUS FUMARATE [Concomitant]
     Active Substance: FERROUS FUMARATE
     Indication: Ill-defined disorder
     Dosage: 1 DOSAGE FORM, BID (TAKE ONE TABLET TWICE A DAY)
     Route: 065
     Dates: start: 20240117
  15. DOXAZOSIN [Concomitant]
     Active Substance: DOXAZOSIN\DOXAZOSIN MESYLATE
     Indication: Ill-defined disorder
     Dosage: 1 DOSAGE FORM, QD (TAKE ONE DAILY)
     Route: 065
     Dates: start: 20240206
  16. SIMVASTATIN [Concomitant]
     Active Substance: SIMVASTATIN
     Indication: Ill-defined disorder
     Dosage: 1 DOSAGE FORM, PM (TAKE ONE AT NIGHT)
     Route: 065
     Dates: start: 20240206
  17. LITHIUM [Concomitant]
     Active Substance: LITHIUM
     Indication: Ill-defined disorder
     Dosage: 1 DOSAGE FORM, PM (TAKE ONE AT 10PM)
     Route: 065
     Dates: start: 20241202

REACTIONS (1)
  - Toxicity to various agents [Recovering/Resolving]

NARRATIVE: CASE EVENT DATE: 20241125
